FAERS Safety Report 13006462 (Version 1)
Quarter: 2016Q4

REPORT INFORMATION
  Report Type: Spontaneous
  Country: US (occurrence: US)
  Receive Date: 20161207
  Receipt Date: 20161207
  Transmission Date: 20170207
  Serious: No
  Sender: FDA-Public Use
  Company Number: US-BAYER-2016-228796

PATIENT
  Age: 82 Year
  Sex: Female
  Weight: 57.6 kg

DRUGS (4)
  1. PHILLIPS^ LAXATIVE DIETARY SUPPLEMENT [Concomitant]
     Active Substance: MAGNESIUM OXIDE
  2. MIRALAX [Suspect]
     Active Substance: POLYETHYLENE GLYCOL 3350
     Indication: CONSTIPATION
  3. PHILLIPS^ LIQUID GELS STOOL SOFTENER [Concomitant]
     Active Substance: DOCUSATE SODIUM
  4. MIRALAX [Suspect]
     Active Substance: POLYETHYLENE GLYCOL 3350
     Indication: GASTROINTESTINAL DISORDER
     Route: 048

REACTIONS (3)
  - Drug prescribing error [Unknown]
  - Product use issue [Unknown]
  - Underdose [Unknown]
